FAERS Safety Report 8320763-2 (Version None)
Quarter: 2012Q2

REPORT INFORMATION
  Report Type: 
  Country: None (occurrence: None)
  Receive Date: 20120430
  Receipt Date: 20120423
  Transmission Date: 20120825
  Serious: Yes (Death)
  Sender: FDA-Public Use
  Company Number: PHHY2012US035391

PATIENT
  Age: 31 Year
  Sex: Female

DRUGS (6)
  1. METFORMIN HCL [Suspect]
  2. ESCITALOPRAM [Suspect]
  3. ESOMEPRAZOLE MAGNESIUM [Suspect]
  4. ACETAMINOPHEN AND CODEINE PHOSPHATE [Suspect]
  5. CALCIUM CHANNEL BLOCKERS [Suspect]
     Dosage: UNK
  6. METOPROLOL TARTRATE [Suspect]

REACTIONS (1)
  - COMPLETED SUICIDE [None]
